FAERS Safety Report 11429030 (Version 1)
Quarter: 2015Q3

REPORT INFORMATION
  Report Type: Spontaneous
  Country: US (occurrence: US)
  Receive Date: 20150828
  Receipt Date: 20150828
  Transmission Date: 20151125
  Serious: No
  Sender: FDA-Public Use
  Company Number: US-ROCHE-1211275

PATIENT
  Sex: Female

DRUGS (3)
  1. PEGASYS [Suspect]
     Active Substance: PEGINTERFERON ALFA-2A
     Indication: CHRONIC HEPATITIS C
     Route: 058
     Dates: start: 20130401
  2. RIBAVIRIN. [Suspect]
     Active Substance: RIBAVIRIN
     Indication: CHRONIC HEPATITIS C
     Dosage: DIVIDED DOSE
     Route: 048
     Dates: start: 20130401
  3. NADOLOL. [Concomitant]
     Active Substance: NADOLOL
     Indication: PULMONARY HYPERTENSION

REACTIONS (17)
  - Fatigue [Recovered/Resolved]
  - Malaise [Unknown]
  - Dizziness [Recovered/Resolved]
  - Weight decreased [Unknown]
  - Asthenia [Unknown]
  - Back pain [Recovered/Resolved]
  - Dyspnoea [Unknown]
  - Tinnitus [Unknown]
  - Pain [Unknown]
  - Body temperature increased [Unknown]
  - Chills [Recovered/Resolved]
  - Syncope [Unknown]
  - Contusion [Unknown]
  - Decreased appetite [Unknown]
  - Diarrhoea [Unknown]
  - Headache [Unknown]
  - Hypotension [Unknown]
